FAERS Safety Report 9516275 (Version 1)
Quarter: 2013Q1

REPORT INFORMATION
  Report Type: Spontaneous
  Country: JP (occurrence: None)
  Receive Date: 20121109
  Receipt Date: 20121109
  Transmission Date: 20140127
  Serious: Yes (Death)
  Sender: FDA-Public Use
  Company Number: 2011S1000715

PATIENT
  Age: 86 Year
  Sex: Male
  Weight: 60 kg

DRUGS (8)
  1. CUBICIN (DAPTOMYCIN) [Suspect]
     Route: 042
     Dates: start: 20111025, end: 20111025
  2. PENTCILLIN [Concomitant]
  3. FENTANYL [Concomitant]
  4. HEPARIN [Concomitant]
  5. PARIET [Concomitant]
  6. ZYVOX [Concomitant]
  7. VANCOMYCIN [Concomitant]
  8. ALL OTHER THERAPEUTIC PRODUCTS [Concomitant]

REACTIONS (7)
  - Hypoxia [None]
  - Depressed level of consciousness [None]
  - Pyrexia [None]
  - Bradycardia [None]
  - Acute respiratory distress syndrome [None]
  - Prothrombin time prolonged [None]
  - Urine output decreased [None]
